FAERS Safety Report 18380480 (Version 1)
Quarter: 2020Q4

REPORT INFORMATION
  Report Type: Spontaneous
  Country: JP (occurrence: JP)
  Receive Date: 20201013
  Receipt Date: 20201013
  Transmission Date: 20210114
  Serious: Yes (Death, Hospitalization)
  Sender: FDA-Public Use
  Company Number: JP-ROCHE-2693467

PATIENT
  Age: 67 Year
  Sex: Male
  Weight: 78 kg

DRUGS (7)
  1. GLIMEPIRIDE OD [Concomitant]
     Active Substance: GLIMEPIRIDE
     Dosage: DOSAGE IS UNCERTAIN.
     Route: 048
  2. PIOGLITAZONE. [Concomitant]
     Active Substance: PIOGLITAZONE
     Dosage: DOSAGE IS UNCERTAIN.
     Route: 048
  3. FLUOROURACIL. [Suspect]
     Active Substance: FLUOROURACIL
     Dosage: DOSE INTERVAL UNCERTAINTY
     Route: 041
     Dates: start: 20190717, end: 20200511
  4. GLACTIV [Concomitant]
     Active Substance: SITAGLIPTIN
     Dosage: DOSAGE IS UNCERTAIN.
     Route: 048
  5. AVASTIN [Suspect]
     Active Substance: BEVACIZUMAB
     Indication: COLON CANCER
     Dosage: DOSE INTERVAL UNCERTAINTY
     Route: 041
     Dates: start: 20190805, end: 20200511
  6. ELPLAT [Suspect]
     Active Substance: OXALIPLATIN
     Indication: COLON CANCER
     Dosage: DOSE INTERVAL UNCERTAINTY
     Route: 041
     Dates: start: 20190717, end: 20200511
  7. FLUOROURACIL. [Suspect]
     Active Substance: FLUOROURACIL
     Indication: COLON CANCER
     Route: 040
     Dates: start: 20190717, end: 20200511

REACTIONS (2)
  - Asthma [Unknown]
  - Interstitial lung disease [Fatal]

NARRATIVE: CASE EVENT DATE: 202002
